FAERS Safety Report 8444561 (Version 4)
Quarter: 2013Q1

REPORT INFORMATION
  Report Type: Spontaneous
  Country: US (occurrence: None)
  Receive Date: 20120227
  Receipt Date: 20121105
  Transmission Date: 20140127
  Serious: Yes (Death, Hospitalization)
  Sender: FDA-Public Use
  Company Number: 130025

PATIENT
  Age: 62 Year
  Sex: Male
  Weight: 69 kg

DRUGS (1)
  1. LEUCOVORIN CALCIUM [Suspect]
     Indication: COLORECTAL CANCER METASTATIC
     Dates: start: 20111024, end: 20120116

REACTIONS (17)
  - Dizziness [None]
  - Asthenia [None]
  - Back pain [None]
  - Urinary incontinence [None]
  - Electrocardiogram ST segment elevation [None]
  - Cerebellar atrophy [None]
  - Malignant neoplasm progression [None]
  - Encephalopathy [None]
  - Metastases to meninges [None]
  - Malignant pleural effusion [None]
  - Respiratory disorder [None]
  - Tachypnoea [None]
  - Colorectal cancer metastatic [None]
  - Cardiomegaly [None]
  - Metastases to lymph nodes [None]
  - Central nervous system lesion [None]
  - Myelopathy [None]
